FAERS Safety Report 24689616 (Version 1)
Quarter: 2024Q4

REPORT INFORMATION
  Report Type: Report from Study
  Country: SA (occurrence: SA)
  Receive Date: 20241203
  Receipt Date: 20241203
  Transmission Date: 20250115
  Serious: Yes (Death, Hospitalization, Other)
  Sender: ABBVIE
  Company Number: SA-ABBVIE-6029387

PATIENT
  Age: 76 Year
  Sex: Male

DRUGS (5)
  1. RINVOQ [Suspect]
     Active Substance: UPADACITINIB
     Indication: Dermatitis atopic
     Dosage: 15 MILLIGRAM
     Route: 048
     Dates: start: 20220314, end: 20240823
  2. GLICLAZIDE [Concomitant]
     Active Substance: GLICLAZIDE
     Indication: Diabetes mellitus
     Dosage: 30 MILLIGRAM, STOP DATE TEXT: MID OF SEPTEMBER 2024
     Route: 048
     Dates: start: 20220516, end: 202409
  3. ASPIRIN [Concomitant]
     Active Substance: ASPIRIN
     Indication: Prophylaxis
     Dosage: 81 MILLIGRAM, STOP DATE TEXT: MID OF SEPTEMBER 2024
     Route: 048
     Dates: start: 20211027, end: 202409
  4. BISOPROLOL [Concomitant]
     Active Substance: BISOPROLOL
     Indication: Hypertension
     Dosage: 2.5 MILLIGRAM, STOP DATE TEXT: MID OF SEPTEMBER 2024
     Route: 048
     Dates: start: 20220516, end: 202409
  5. SITAGLIPTIN [Concomitant]
     Active Substance: SITAGLIPTIN
     Indication: Diabetes mellitus
     Dosage: 100 MILLIGRAM, STOP DATE TEXT: MID OF SEPTEMBER 2024
     Route: 048
     Dates: start: 20220516, end: 202409

REACTIONS (2)
  - Coma [Fatal]
  - Herpes zoster [Fatal]

NARRATIVE: CASE EVENT DATE: 20240901
